FAERS Safety Report 6409959-4 (Version None)
Quarter: 2009Q4

REPORT INFORMATION
  Report Type: 
  Country: None (occurrence: None)
  Receive Date: 20091022
  Receipt Date: 20091014
  Transmission Date: 20100525
  Serious: Yes (Hospitalization)
  Sender: FDA-Public Use
  Company Number: AU-ASTRAZENECA-2009SE20562

PATIENT
  Age: 71 Day
  Sex: Female

DRUGS (1)
  1. NEXIUM SACHETS [Suspect]
     Route: 048
     Dates: start: 20090915

REACTIONS (1)
  - URINARY TRACT INFECTION [None]
